FAERS Safety Report 14959238 (Version 1)
Quarter: 2018Q2

REPORT INFORMATION
  Report Type: Spontaneous
  Country: US (occurrence: US)
  Receive Date: 20180531
  Receipt Date: 20180531
  Transmission Date: 20180711
  Serious: Yes (Other)
  Sender: FDA-Public Use
  Company Number: US-TEVA-2018-US-897441

PATIENT
  Sex: Female

DRUGS (1)
  1. DOXYCYCLINE HYCLATE. [Suspect]
     Active Substance: DOXYCYCLINE HYCLATE
     Indication: INFECTION
     Dates: end: 20180521

REACTIONS (5)
  - Visual impairment [Unknown]
  - Eye swelling [Unknown]
  - Abdominal discomfort [Unknown]
  - Eye pain [Unknown]
  - Swelling [Unknown]
